FAERS Safety Report 8540755-8 (Version None)
Quarter: 2012Q3

REPORT INFORMATION
  Report Type: 
  Country: None (occurrence: None)
  Receive Date: 20120726
  Receipt Date: 20120611
  Transmission Date: 20120928
  Serious: No
  Sender: FDA-Public Use
  Company Number: US-MYLANLABS-2012S1010415

PATIENT
  Age: 88 Year
  Sex: Female

DRUGS (15)
  1. CLONIDINE [Suspect]
     Indication: BLOOD PRESSURE INCREASED
     Dosage: CHANGED QW
     Route: 062
     Dates: start: 20120401, end: 20120522
  2. ZONISAMIDE [Concomitant]
     Route: 048
  3. CLONIDINE [Suspect]
     Dosage: CHANGED QW
     Route: 062
     Dates: start: 20120522
  4. COQ-10 [Concomitant]
  5. XANAX [Concomitant]
     Dosage: EVERY 8 HOURS
  6. CALCIUM MAGNESIUM ZINC [Concomitant]
  7. PROCRIT /00909301/ [Concomitant]
     Dosage: QW AS NEEDED
     Route: 030
  8. HYDRALAZINE HCL [Concomitant]
     Route: 048
  9. AMLODIPINE [Concomitant]
     Route: 048
  10. RITUXAN [Concomitant]
     Indication: NEOPLASM MALIGNANT
     Dosage: EVERY 6 MONTHS AS NEEDED
     Route: 042
  11. LASIX [Concomitant]
  12. ASPIRIN [Concomitant]
  13. POTASSIUM CHLORIDE [Concomitant]
     Route: 048
  14. COUMADIN [Concomitant]
     Dosage: AS DIRECTED
  15. MULTI-VITAMIN [Concomitant]

REACTIONS (7)
  - BLOOD PRESSURE FLUCTUATION [None]
  - ASTHENIA [None]
  - FEELING ABNORMAL [None]
  - MALAISE [None]
  - OVERDOSE [None]
  - BLOOD PRESSURE INCREASED [None]
  - DRUG INEFFECTIVE [None]
